FAERS Safety Report 9018078 (Version 2)
Quarter: 2013Q1

REPORT INFORMATION
  Report Type: Spontaneous
  Country: IT (occurrence: IT)
  Receive Date: 20130117
  Receipt Date: 20130205
  Transmission Date: 20140127
  Serious: Yes (Hospitalization)
  Sender: FDA-Public Use
  Company Number: PHHY2013IT003960

PATIENT
  Age: 71 Year
  Sex: Female

DRUGS (7)
  1. ANAFRANIL [Suspect]
     Indication: BIPOLAR DISORDER
     Dosage: 75 MG/DAY
     Route: 048
     Dates: start: 20121022, end: 20121122
  2. ALPRAZOLAM [Suspect]
     Indication: ANXIETY
     Dosage: 30 GTT/DAY
     Route: 048
     Dates: start: 20080101, end: 20121122
  3. LAMICTAL [Suspect]
     Indication: BIPOLAR DISORDER
     Dosage: 50 MG/DAY
     Route: 048
     Dates: start: 20080101, end: 20121122
  4. FEVARIN [Interacting]
     Indication: DEPRESSION
     Dosage: 500 MG/DAY
     Route: 048
     Dates: start: 20110101, end: 20121122
  5. METFORMINE [Concomitant]
     Indication: DIABETES MELLITUS
     Dosage: 3000 MG/DAY
  6. PROVISACOR [Concomitant]
     Indication: TYPE 2 DIABETES MELLITUS
  7. CARDIOASPIRIN [Concomitant]

REACTIONS (4)
  - Muscle rigidity [Not Recovered/Not Resolved]
  - Tremor [Not Recovered/Not Resolved]
  - Drug interaction [Not Recovered/Not Resolved]
  - Antidepressant drug level increased [Not Recovered/Not Resolved]
